FAERS Safety Report 9629908 (Version 3)
Quarter: 2014Q1

REPORT INFORMATION
  Report Type: Report from Study
  Country: US (occurrence: US)
  Receive Date: 20131017
  Receipt Date: 20140127
  Transmission Date: 20141002
  Serious: Yes (Hospitalization)
  Sender: FDA-Public Use
  Company Number: US-B.I. PHARMACEUTICALS,INC./RIDGEFIELD-2013-BI-32421BI

PATIENT
  Age: 71 Year
  Sex: Male
  Weight: 143.8 kg

DRUGS (2)
  1. DABIGATRAN [Suspect]
     Indication: ATRIAL FIBRILLATION
     Dosage: 300 MG
     Route: 048
     Dates: start: 20130719
  2. DABIGATRAN [Suspect]
     Route: 048

REACTIONS (1)
  - Transient ischaemic attack [Recovered/Resolved]
